FAERS Safety Report 10198556 (Version 1)
Quarter: 2014Q2

REPORT INFORMATION
  Report Type: Spontaneous
  Country: US (occurrence: US)
  Receive Date: 20140527
  Receipt Date: 20140527
  Transmission Date: 20141212
  Serious: No
  Sender: FDA-Public Use
  Company Number: US-NOVEN-13US008219

PATIENT
  Sex: Male
  Weight: 23.13 kg

DRUGS (2)
  1. DAYTRANA [Suspect]
     Indication: ATTENTION DEFICIT/HYPERACTIVITY DISORDER
     Dosage: 10 MG, QD
     Route: 062
     Dates: start: 2010, end: 201311
  2. TRIAMCINOLONE [Concomitant]
     Indication: ECZEMA
     Route: 062

REACTIONS (1)
  - Eyelid irritation [Not Recovered/Not Resolved]
